FAERS Safety Report 4609854-7 (Version None)
Quarter: 2005Q1

REPORT INFORMATION
  Report Type: 
  Country: None (occurrence: None)
  Receive Date: 20050314
  Receipt Date: 20050314
  Transmission Date: 20050727
  Serious: Yes (Disabling, Other)
  Sender: FDA-Public Use
  Company Number: None

PATIENT
  Age: 36 Year
  Sex: Female
  Weight: 66.6788 kg

DRUGS (4)
  1. DEXATRIM TABLETS [Suspect]
     Indication: WEIGHT LOSS POOR
     Dosage: ORAL
     Route: 048
     Dates: start: 19951007, end: 19951107
  2. ALKA-SELTZER PLUS COLD MEDICINE [Suspect]
     Indication: NASOPHARYNGITIS
     Dosage: ORAL
     Route: 048
     Dates: start: 19951007, end: 19951107
  3. DIMETAPP [Suspect]
     Indication: NASOPHARYNGITIS
     Dosage: ORAL
     Route: 048
     Dates: start: 19951007, end: 19951107
  4. TRIAMINIC [Suspect]
     Indication: NASOPHARYNGITIS
     Dosage: ORAL
     Route: 048
     Dates: start: 19951007, end: 19951107

REACTIONS (5)
  - CEREBROVASCULAR ACCIDENT [None]
  - HEMIPARESIS [None]
  - INJURY [None]
  - MENTAL DISORDER [None]
  - PAIN [None]
